FAERS Safety Report 9571206 (Version 3)
Quarter: 2013Q4

REPORT INFORMATION
  Report Type: Report from Study
  Country: AU (occurrence: AU)
  Receive Date: 20131001
  Receipt Date: 20131209
  Transmission Date: 20140711
  Serious: Yes (Death)
  Sender: FDA-Public Use
  Company Number: PHHY2013AU086711

PATIENT
  Age: 89 Year
  Sex: Female

DRUGS (3)
  1. ACLASTA [Suspect]
     Dosage: 5 MG, UNK
     Route: 042
     Dates: start: 20120803
  2. CALCIUM [Concomitant]
  3. VIT D [Concomitant]
     Dosage: UNK UKN, UNK

REACTIONS (5)
  - Cardiac disorder [Fatal]
  - Death [Fatal]
  - Protein total decreased [Unknown]
  - Globulins decreased [Unknown]
  - Blood calcium decreased [Recovered/Resolved]
